FAERS Safety Report 22121412 (Version 1)
Quarter: 2023Q1

REPORT INFORMATION
  Report Type: Report from Study
  Country: CA (occurrence: CA)
  Receive Date: 20230321
  Receipt Date: 20230321
  Transmission Date: 20230418
  Serious: Yes (Other)
  Sender: FDA-Public Use
  Company Number: CA-JNJFOC-20230347767

PATIENT
  Age: 24 Year
  Sex: Female

DRUGS (1)
  1. REMICADE [Suspect]
     Active Substance: INFLIXIMAB
     Indication: Crohn^s disease
     Dosage: PARTIAL HARVEY-BRADSHAW COMPLETED ON 17-MAR-2023 AND ON SAME DATE THE PATIENT RECEIVED 49TH INFUSION
     Route: 042
     Dates: start: 20161013

REACTIONS (3)
  - Crohn^s disease [Recovered/Resolved with Sequelae]
  - Nasopharyngitis [Unknown]
  - Influenza [Unknown]

NARRATIVE: CASE EVENT DATE: 20230316
